FAERS Safety Report 6762782-3 (Version None)
Quarter: 2010Q2

REPORT INFORMATION
  Report Type: 
  Country: None (occurrence: None)
  Receive Date: 20100609
  Receipt Date: 20100602
  Transmission Date: 20101027
  Serious: Yes (Life-Threatening, Hospitalization)
  Sender: FDA-Public Use
  Company Number: B0658350A

PATIENT
  Sex: Male

DRUGS (1)
  1. CLAMOXYL [Suspect]
     Indication: NASOPHARYNGITIS
     Route: 048
     Dates: start: 20100219, end: 20100219

REACTIONS (6)
  - ANAPHYLACTIC SHOCK [None]
  - DIARRHOEA [None]
  - HYPOTENSION [None]
  - HYPOTHERMIA [None]
  - MALAISE [None]
  - RASH [None]
